FAERS Safety Report 4276018-9 (Version None)
Quarter: 2004Q1

REPORT INFORMATION
  Report Type: 
  Country: None (occurrence: None)
  Receive Date: 20040121
  Receipt Date: 20030616
  Transmission Date: 20041129
  Serious: No
  Sender: FDA-Public Use
  Company Number: US-GLAXOSMITHKLINE-A0412615A

PATIENT
  Age: 86 Year
  Sex: Male

DRUGS (5)
  1. VALTREX [Suspect]
     Dosage: 1G THREE TIMES PER DAY
     Route: 048
     Dates: start: 20030609
  2. LIPITOR [Concomitant]
  3. ASPIRIN [Concomitant]
  4. SULINDAC [Concomitant]
  5. CARDIAC MEDICATION [Concomitant]

REACTIONS (1)
  - DRUG INEFFECTIVE [None]
